FAERS Safety Report 12491085 (Version 1)
Quarter: 2016Q2

REPORT INFORMATION
  Report Type: Spontaneous
  Country: GB (occurrence: GB)
  Receive Date: 20160623
  Receipt Date: 20160623
  Transmission Date: 20160815
  Serious: Yes (Other)
  Sender: FDA-Public Use
  Company Number: GB-ROCHE-1779188

PATIENT
  Age: 49 Year
  Sex: Male

DRUGS (10)
  1. IBANDRONIC ACID [Concomitant]
     Active Substance: IBANDRONIC ACID
     Route: 065
  2. EXEMESTANE. [Concomitant]
     Active Substance: EXEMESTANE
  3. HERCEPTIN [Suspect]
     Active Substance: TRASTUZUMAB
     Indication: PRODUCT USED FOR UNKNOWN INDICATION
     Route: 065
  4. DOCETAXEL. [Concomitant]
     Active Substance: DOCETAXEL
  5. TAMOXIFEN [Concomitant]
     Active Substance: TAMOXIFEN
  6. ANASTROZOLE. [Concomitant]
     Active Substance: ANASTROZOLE
  7. PERJETA [Concomitant]
     Active Substance: PERTUZUMAB
     Route: 065
  8. DENOSUMAB [Concomitant]
     Active Substance: DENOSUMAB
  9. ZOLEDRONIC ACID [Concomitant]
     Active Substance: ZOLEDRONIC ACID
  10. ZOLADEX [Concomitant]
     Active Substance: GOSERELIN ACETATE

REACTIONS (7)
  - Mass [Unknown]
  - Liver disorder [Unknown]
  - Cell marker increased [Unknown]
  - Musculoskeletal chest pain [Unknown]
  - Ejection fraction decreased [Unknown]
  - Metastases to spine [Unknown]
  - Metastases to bone [Unknown]
